FAERS Safety Report 10061269 (Version 3)
Quarter: 2014Q2

REPORT INFORMATION
  Report Type: Report from Study
  Country: JP (occurrence: JP)
  Receive Date: 20140407
  Receipt Date: 20140604
  Transmission Date: 20141212
  Serious: Yes (Life-Threatening)
  Sender: FDA-Public Use
  Company Number: JP-ABBVIE-14P-087-1221597-00

PATIENT
  Age: 42 Year
  Sex: Female
  Weight: 57 kg

DRUGS (2)
  1. LEUPRORELIN DEPOT [Suspect]
     Indication: BREAST CANCER FEMALE
     Route: 058
     Dates: start: 20130509
  2. TAMOXIFEN CITRATE [Suspect]
     Indication: BREAST CANCER FEMALE
     Route: 048
     Dates: start: 20130410, end: 20140320

REACTIONS (3)
  - Metastases to central nervous system [Not Recovered/Not Resolved]
  - Metastases to lung [Not Recovered/Not Resolved]
  - Metastases to bone [Not Recovered/Not Resolved]
